FAERS Safety Report 4772590-0 (Version None)
Quarter: 2005Q3

REPORT INFORMATION
  Report Type: 
  Country: None (occurrence: None)
  Receive Date: 20050919
  Receipt Date: 20050811
  Transmission Date: 20060218
  Serious: Yes (Hospitalization)
  Sender: FDA-Public Use
  Company Number: PHBS2005JP11777

PATIENT
  Age: 56 Year
  Sex: Female
  Weight: 56 kg

DRUGS (3)
  1. NITRODERM [Suspect]
     Indication: ANGINA PECTORIS
     Dosage: 25 MG, QD
     Route: 062
     Dates: start: 20050805, end: 20050810
  2. SIGMART [Suspect]
     Indication: ANGINA PECTORIS
     Dosage: 10 MG, UNK
     Route: 048
     Dates: start: 20050806, end: 20050808
  3. HERBESSER [Suspect]
     Indication: ANGINA PECTORIS
     Dosage: 30 MG, QID
     Route: 048
     Dates: start: 20050805, end: 20050811

REACTIONS (8)
  - ANGINA PECTORIS [None]
  - CONDITION AGGRAVATED [None]
  - EOSINOPHIL COUNT INCREASED [None]
  - EOSINOPHILIA [None]
  - ERYTHEMA [None]
  - PRURITUS [None]
  - RASH [None]
  - RASH GENERALISED [None]
